FAERS Safety Report 7076335-3 (Version None)
Quarter: 2010Q4

REPORT INFORMATION
  Report Type: 
  Country: None (occurrence: None)
  Receive Date: 20101101
  Receipt Date: 20101022
  Transmission Date: 20110411
  Serious: Yes (Other)
  Sender: FDA-Public Use
  Company Number: US-BAYER-201038837NA

PATIENT
  Sex: Female

DRUGS (3)
  1. YAZ [Suspect]
     Route: 048
     Dates: start: 20030101
  2. YASMIN [Suspect]
     Route: 048
     Dates: start: 20030101
  3. DROSPIRENONE AND ETHINYL ESTRADIOL [Suspect]
     Route: 065
     Dates: start: 20030101

REACTIONS (1)
  - CHOLECYSTECTOMY [None]
